FAERS Safety Report 6910305-8 (Version None)
Quarter: 2010Q3

REPORT INFORMATION
  Report Type: 
  Country: None (occurrence: None)
  Receive Date: 20100806
  Receipt Date: 20100728
  Transmission Date: 20110219
  Serious: Yes (Other)
  Sender: FDA-Public Use
  Company Number: ES-ASTRAZENECA-2010SE35868

PATIENT
  Age: 18 Month
  Sex: Female

DRUGS (1)
  1. PULMICORT [Suspect]
     Indication: WHEEZING
     Route: 055
     Dates: start: 20100301, end: 20100601

REACTIONS (1)
  - TOOTH DISCOLOURATION [None]
